FAERS Safety Report 25990581 (Version 1)
Quarter: 2025Q4

REPORT INFORMATION
  Report Type: Spontaneous
  Country: US (occurrence: US)
  Receive Date: 20251103
  Receipt Date: 20251103
  Transmission Date: 20260117
  Serious: Yes (Hospitalization, Disabling, Other)
  Sender: NOVO NORDISK
  Company Number: US-NOVOPROD-1552716

PATIENT
  Age: 63 Year
  Sex: Male

DRUGS (2)
  1. NOVOLOG [Suspect]
     Active Substance: INSULIN ASPART
     Indication: Type 2 diabetes mellitus
     Dosage: UNK
     Dates: start: 199407
  2. LEVEMIR [Suspect]
     Active Substance: INSULIN DETEMIR
     Indication: Type 2 diabetes mellitus
     Dosage: 25 IU, QD

REACTIONS (7)
  - Cataract [Recovered/Resolved]
  - Road traffic accident [Recovering/Resolving]
  - Cervical vertebral fracture [Not Recovered/Not Resolved]
  - Lumbar vertebral fracture [Not Recovered/Not Resolved]
  - Wound infection staphylococcal [Not Recovered/Not Resolved]
  - Pneumonia [Recovered/Resolved]
  - Gastrointestinal candidiasis [Recovered/Resolved]

NARRATIVE: CASE EVENT DATE: 20010101
